FAERS Safety Report 7374769-0 (Version None)
Quarter: 2011Q1

REPORT INFORMATION
  Report Type: 
  Country: None (occurrence: None)
  Receive Date: 20110325
  Receipt Date: 20101026
  Transmission Date: 20110831
  Serious: No
  Sender: FDA-Public Use
  Company Number: US-MYLANLABS-2010S1019739

PATIENT
  Age: 61 Year
  Sex: Female

DRUGS (14)
  1. IMITREX [Concomitant]
     Indication: MIGRAINE
  2. FENTANYL-100 [Suspect]
     Indication: BACK PAIN
     Dosage: CHANGED Q72H
     Route: 062
     Dates: start: 20090227
  3. MAGNESIUM [Concomitant]
     Indication: FIBROMYALGIA
  4. LEVOTHYROXINE SODIUM [Concomitant]
     Indication: HYPOTHYROIDISM
  5. NEURONTIN [Concomitant]
     Indication: FIBROMYALGIA
  6. TOPAMAX [Concomitant]
     Indication: MIGRAINE
  7. SOMA [Concomitant]
     Indication: MUSCLE RELAXANT THERAPY
  8. FENTANYL-100 [Suspect]
     Indication: FIBROMYALGIA
     Dosage: CHANGED Q72H
     Route: 062
     Dates: start: 20090227
  9. PERCOCET [Concomitant]
     Indication: BREAKTHROUGH PAIN
     Dosage: 10MG/325MG X 2
  10. ESTRADIOL [Concomitant]
     Indication: HORMONE REPLACEMENT THERAPY
  11. TEMAZEPAM [Concomitant]
     Indication: INSOMNIA
  12. PROZAC [Concomitant]
     Indication: DEPRESSION
  13. CIMETIDINE [Concomitant]
     Indication: GASTROOESOPHAGEAL REFLUX DISEASE
  14. AMITRIPTYLINE [Concomitant]
     Indication: MIGRAINE

REACTIONS (4)
  - APPLICATION SITE IRRITATION [None]
  - APPLICATION SITE ERYTHEMA [None]
  - APPLICATION SITE EROSION [None]
  - APPLICATION SITE RASH [None]
